FAERS Safety Report 24623453 (Version 1)
Quarter: 2024Q4

REPORT INFORMATION
  Report Type: Spontaneous
  Country: CA (occurrence: CA)
  Receive Date: 20241115
  Receipt Date: 20241115
  Transmission Date: 20250115
  Serious: Yes (Other)
  Sender: CELLTRION
  Company Number: CA-PFIZER INC-PV202400137627

PATIENT

DRUGS (1)
  1. INFLECTRA [Suspect]
     Active Substance: INFLIXIMAB-DYYB
     Indication: Colitis ulcerative
     Dosage: 300 MG, EVERY 6 WEEKS
     Route: 042
     Dates: start: 20240924

REACTIONS (9)
  - Skin cancer [Unknown]
  - Haemorrhage [Unknown]
  - Erythema [Unknown]
  - Acne [Unknown]
  - Scab [Unknown]
  - Skin infection [Recovered/Resolved]
  - Macule [Recovered/Resolved]
  - Skin haemorrhage [Recovered/Resolved]
  - Skin swelling [Recovered/Resolved]

NARRATIVE: CASE EVENT DATE: 20240101
